FAERS Safety Report 4398281-6 (Version None)
Quarter: 2004Q3

REPORT INFORMATION
  Report Type: 
  Country: None (occurrence: None)
  Receive Date: 20040712
  Receipt Date: 20040624
  Transmission Date: 20050211
  Serious: Yes (Hospitalization)
  Sender: FDA-Public Use
  Company Number: ES-JNJFOC-20040300687

PATIENT
  Age: 54 Year
  Sex: Male

DRUGS (5)
  1. REMICADE [Suspect]
     Indication: PSORIATIC ARTHROPATHY
     Dosage: REMICADE NOT ADMINISTERED
  2. PLACEBO (PLACEBO) LYOPHILIZED POWDER [Suspect]
     Indication: PSORIATIC ARTHROPATHY
     Dosage: 3 MG/KG, INTRAVENOUS
     Route: 042
     Dates: start: 20020301, end: 20020807
  3. METHOTREXATE [Concomitant]
  4. INDOMETHACIN [Concomitant]
  5. FOLIC ACID [Concomitant]

REACTIONS (2)
  - GASTRIC ULCER [None]
  - MELAENA [None]
